FAERS Safety Report 7247732-8 (Version None)
Quarter: 2011Q1

REPORT INFORMATION
  Report Type: 
  Country: None (occurrence: None)
  Receive Date: 20110127
  Receipt Date: 20110117
  Transmission Date: 20110831
  Serious: Yes (Hospitalization)
  Sender: FDA-Public Use
  Company Number: KR-ELI_LILLY_AND_COMPANY-KR201008004599

PATIENT
  Sex: Male
  Weight: 63.3 kg

DRUGS (8)
  1. GASTROPYLORE [Concomitant]
     Indication: SUPPLEMENTATION THERAPY
     Dates: start: 20080909
  2. TRIDOL [Concomitant]
     Indication: PAIN
     Dates: start: 20080626
  3. PEMETREXED [Suspect]
     Indication: NON-SMALL CELL LUNG CANCER
     Dosage: 500 MG/M2, DAY ONE EVERY THREE WEEKS
     Route: 042
     Dates: start: 20080909
  4. FOLIC ACID [Concomitant]
     Dosage: 1 MG, DAILY (1/D)
     Route: 048
     Dates: start: 20080903
  5. VITAMIN B-12 [Concomitant]
     Dosage: 1 MG, UNKNOWN
     Route: 030
     Dates: start: 20080903, end: 20080903
  6. DEXAMETHASONE [Concomitant]
     Dosage: 15 MG, DAILY (1/D)
     Route: 042
     Dates: start: 20080909, end: 20081001
  7. AMITRIPTYLINE [Concomitant]
     Indication: ANTIDEPRESSANT THERAPY
     Dates: start: 20080909
  8. CHLORPHENIRAMINE [Concomitant]
     Indication: COUGH
     Dates: start: 20081001

REACTIONS (1)
  - PNEUMONIA [None]
